FAERS Safety Report 4551352-3 (Version None)
Quarter: 2005Q1

REPORT INFORMATION
  Report Type: 
  Country: None (occurrence: None)
  Receive Date: 20050107
  Receipt Date: 20041222
  Transmission Date: 20050727
  Serious: Yes (Hospitalization, Other)
  Sender: FDA-Public Use
  Company Number: 208876

PATIENT
  Age: 70 Year
  Sex: Female

DRUGS (1)
  1. HERCEPTIN [Suspect]
     Indication: BREAST CANCER
     Dosage: 4 MG/KG, INTRAVENOUS
     Route: 042

REACTIONS (3)
  - CHILLS [None]
  - PYREXIA [None]
  - SOMNOLENCE [None]
